FAERS Safety Report 7049400-4 (Version None)
Quarter: 2010Q4

REPORT INFORMATION
  Report Type: 
  Country: None (occurrence: None)
  Receive Date: 20101012
  Receipt Date: 20101001
  Transmission Date: 20110411
  Serious: Yes (Disabling)
  Sender: FDA-Public Use
  Company Number: OSCN-NO-0901S-0033

PATIENT
  Age: 69 Year
  Sex: Male

DRUGS (12)
  1. OMNISCAN [Suspect]
     Indication: NEPHRECTOMY
     Dosage: 15 ML, SINGLE DOSE, I.V. ; 15 ML, SINGLE DOSE, I.V.
     Route: 042
     Dates: start: 20000905, end: 20000905
  2. OMNISCAN [Suspect]
     Indication: PYREXIA
     Dosage: 15 ML, SINGLE DOSE, I.V. ; 15 ML, SINGLE DOSE, I.V.
     Route: 042
     Dates: start: 20000905, end: 20000905
  3. OMNISCAN [Suspect]
     Indication: NEPHRECTOMY
     Dosage: 15 ML, SINGLE DOSE, I.V. ; 15 ML, SINGLE DOSE, I.V.
     Route: 042
     Dates: start: 20021203, end: 20021203
  4. OMNISCAN [Suspect]
     Indication: PYREXIA
     Dosage: 15 ML, SINGLE DOSE, I.V. ; 15 ML, SINGLE DOSE, I.V.
     Route: 042
     Dates: start: 20021203, end: 20021203
  5. GADOLINIUM (UNSPECIFIED) [Concomitant]
  6. EPOETIN BETA (NEORECORMON) [Concomitant]
  7. DIALYSIS VITAMINS [Concomitant]
  8. MIRTAZAPIN [Concomitant]
  9. HALOPERIDOL [Concomitant]
  10. QUININE [Concomitant]
  11. METOCLOPRAMID [Concomitant]
  12. LACTULOSE [Concomitant]

REACTIONS (10)
  - AORTIC ARTERIOSCLEROSIS [None]
  - BLOOD CALCIUM DECREASED [None]
  - BLOOD CREATININE INCREASED [None]
  - BLOOD PHOSPHORUS INCREASED [None]
  - CARDIOMEGALY [None]
  - GASTROOESOPHAGEAL REFLUX DISEASE [None]
  - HIATUS HERNIA [None]
  - MUSCULOSKELETAL PAIN [None]
  - NEPHROGENIC SYSTEMIC FIBROSIS [None]
  - RESTLESS LEGS SYNDROME [None]
